FAERS Safety Report 8843123 (Version 1)
Quarter: 2012Q4

REPORT INFORMATION
  Report Type: 
  Country: US (occurrence: US)
  Receive Date: 20121016
  Receipt Date: 20121016
  Transmission Date: 20130627
  Serious: Yes (Other)
  Sender: FDA-Public Use
  Company Number: US-ROCHE-1139330

PATIENT
  Age: 67 Year
  Sex: Male

DRUGS (2)
  1. ACTIVASE [Suspect]
     Indication: ACUTE MYOCARDIAL INFARCTION
     Route: 065
  2. ACTIVASE [Suspect]
     Indication: PULMONARY EMBOLISM

REACTIONS (5)
  - Hypotension [Recovered/Resolved]
  - Ocular hyperaemia [Recovered/Resolved]
  - Chest discomfort [Recovered/Resolved]
  - Visual impairment [Recovered/Resolved]
  - Nausea [Recovered/Resolved]
